FAERS Safety Report 9762453 (Version 2)
Quarter: 2014Q2

REPORT INFORMATION
  Report Type: Spontaneous
  Country: US (occurrence: US)
  Receive Date: 20131216
  Receipt Date: 20140501
  Transmission Date: 20141212
  Serious: No
  Sender: FDA-Public Use
  Company Number: US-BIOGENIDEC-2013BI103463

PATIENT
  Age: 48 Year
  Sex: Female
  Weight: 79 kg

DRUGS (5)
  1. TECFIDERA [Suspect]
     Indication: MULTIPLE SCLEROSIS
     Route: 048
     Dates: start: 20130711
  2. TECFIDERA [Suspect]
     Indication: MULTIPLE SCLEROSIS
     Route: 048
  3. FISH OIL [Concomitant]
  4. VITAMIN D [Concomitant]
  5. NAPROXEN SODIUM [Concomitant]

REACTIONS (5)
  - Nasal congestion [Not Recovered/Not Resolved]
  - Dry skin [Unknown]
  - Urticaria [Unknown]
  - Pruritus [Unknown]
  - Diarrhoea [Unknown]
